FAERS Safety Report 9513158 (Version 1)
Quarter: 2013Q3

REPORT INFORMATION
  Report Type: Spontaneous
  Country: KR (occurrence: KR)
  Receive Date: 20130910
  Receipt Date: 20130910
  Transmission Date: 20140515
  Serious: Yes (Other)
  Sender: FDA-Public Use
  Company Number: KR-PFIZER INC-2013256180

PATIENT
  Sex: 0

DRUGS (3)
  1. LYRICA [Suspect]
     Dosage: 75 MG,1 TABLET, HS
     Route: 048
  2. CELEBREX [Concomitant]
     Route: 048
  3. STILLEN [Concomitant]
     Route: 048

REACTIONS (4)
  - VIIth nerve paralysis [Unknown]
  - Dizziness [Unknown]
  - Speech disorder [Unknown]
  - Eye movement disorder [Unknown]
